FAERS Safety Report 4932278-X (Version None)
Quarter: 2006Q1

REPORT INFORMATION
  Report Type: 
  Country: None (occurrence: None)
  Receive Date: 20060228
  Receipt Date: 20060216
  Transmission Date: 20060701
  Serious: Yes (Other)
  Sender: FDA-Public Use
  Company Number: 20723

PATIENT
  Age: 68 Year
  Sex: Male

DRUGS (1)
  1. IMIQUIMOD (IMIQUIMOD) [Suspect]
     Indication: BOWEN'S DISEASE
     Dosage: (1,  3 IN 1 WEEK (S)) TOPICAL
     Route: 061

REACTIONS (8)
  - APPLICATION SITE ERYTHEMA [None]
  - APPLICATION SITE IRRITATION [None]
  - BURNING SENSATION [None]
  - DISEASE RECURRENCE [None]
  - INFLAMMATION [None]
  - PENIS DISORDER [None]
  - PRURITUS [None]
  - SKIN EXFOLIATION [None]
